FAERS Safety Report 18481911 (Version 2)
Quarter: 2020Q4

REPORT INFORMATION
  Report Type: Report from Study
  Country: US (occurrence: US)
  Receive Date: 20201109
  Receipt Date: 20201125
  Transmission Date: 20210114
  Serious: Yes (Other)
  Sender: FDA-Public Use
  Company Number: US-JAZZ-2020-US-012103

PATIENT
  Sex: Female

DRUGS (21)
  1. BACLOFEN. [Concomitant]
     Active Substance: BACLOFEN
  2. XYREM [Suspect]
     Active Substance: SODIUM OXYBATE
     Indication: NARCOLEPSY
     Dosage: 2.25 GRAM, BID
     Route: 048
     Dates: start: 202002, end: 202003
  3. ASPIRIN EC [Concomitant]
     Active Substance: ASPIRIN
  4. ALBUTEROL SULFATE. [Concomitant]
     Active Substance: ALBUTEROL SULFATE
  5. LEVETIRACETAM. [Concomitant]
     Active Substance: LEVETIRACETAM
  6. SUCRALFATE. [Concomitant]
     Active Substance: SUCRALFATE
  7. ALBUTEROL HFA [Concomitant]
     Active Substance: ALBUTEROL SULFATE
  8. METHYLPHENIDATE. [Concomitant]
     Active Substance: METHYLPHENIDATE
  9. TRELEGY ELLIPTA [Concomitant]
     Active Substance: FLUTICASONE FUROATE\UMECLIDINIUM BROMIDE\VILANTEROL TRIFENATATE
  10. XYREM [Suspect]
     Active Substance: SODIUM OXYBATE
     Indication: CATAPLEXY
     Dosage: DOSE ADJUSTMENT
     Route: 048
     Dates: start: 202003, end: 202005
  11. BRIMONIDINE TARTRATE. [Concomitant]
     Active Substance: BRIMONIDINE TARTRATE
  12. FLONASE ALLERGY RELIEF [Concomitant]
     Active Substance: FLUTICASONE PROPIONATE
  13. IPRATROPIUM/ALBUTEROL [Concomitant]
     Active Substance: ALBUTEROL\IPRATROPIUM
  14. LEVOTHYROXINE. [Concomitant]
     Active Substance: LEVOTHYROXINE
  15. XYREM [Suspect]
     Active Substance: SODIUM OXYBATE
     Dosage: 3 GRAM, BID
     Route: 048
     Dates: start: 202005
  16. ATORVASTATIN [Concomitant]
     Active Substance: ATORVASTATIN
  17. LINZESS [Concomitant]
     Active Substance: LINACLOTIDE
  18. CARBAMAZEPINE. [Concomitant]
     Active Substance: CARBAMAZEPINE
  19. GUAIFENESIN. [Concomitant]
     Active Substance: GUAIFENESIN
  20. PREDNISONE. [Concomitant]
     Active Substance: PREDNISONE
  21. TOPIRAMATE. [Concomitant]
     Active Substance: TOPIRAMATE

REACTIONS (5)
  - Barrett^s oesophagus [Not Recovered/Not Resolved]
  - Intervertebral disc protrusion [Unknown]
  - Neck injury [Unknown]
  - Limb injury [Unknown]
  - Gastrooesophageal reflux disease [Unknown]

NARRATIVE: CASE EVENT DATE: 2020
